FAERS Safety Report 9463566 (Version 1)
Quarter: 2013Q3

REPORT INFORMATION
  Report Type: Spontaneous
  Country: IT (occurrence: IT)
  Receive Date: 20130819
  Receipt Date: 20130819
  Transmission Date: 20140515
  Serious: Yes (Hospitalization, Other)
  Sender: FDA-Public Use
  Company Number: IT-BRISTOL-MYERS SQUIBB COMPANY-19176130

PATIENT
  Age: 74 Year
  Sex: Female

DRUGS (1)
  1. COUMADIN TABS 5 MG [Suspect]
     Indication: ATRIAL FIBRILLATION
     Dosage: 1DF:1UNIT:INT ON 9-JUL-2013
     Route: 048
     Dates: start: 20130101

REACTIONS (3)
  - Hypokalaemia [Unknown]
  - Dehydration [Unknown]
  - International normalised ratio increased [Unknown]
